FAERS Safety Report 8340544-3 (Version None)
Quarter: 2012Q2

REPORT INFORMATION
  Report Type: 
  Country: None (occurrence: None)
  Receive Date: 20120507
  Receipt Date: 20090908
  Transmission Date: 20120825
  Serious: Yes (Hospitalization)
  Sender: FDA-Public Use
  Company Number: US-TEVA-2009009940

PATIENT
  Sex: Male
  Weight: 61.744 kg

DRUGS (1)
  1. TREANDA [Suspect]
     Indication: CHRONIC LYMPHOCYTIC LEUKAEMIA
     Route: 042
     Dates: start: 20090805, end: 20090806

REACTIONS (3)
  - DEHYDRATION [None]
  - TUMOUR LYSIS SYNDROME [None]
  - DIARRHOEA [None]
